FAERS Safety Report 4622141-6 (Version None)
Quarter: 2005Q1

REPORT INFORMATION
  Report Type: 
  Country: None (occurrence: None)
  Receive Date: 20050328
  Receipt Date: 20050222
  Transmission Date: 20050727
  Serious: No
  Sender: FDA-Public Use
  Company Number: 2005UW04545

PATIENT
  Age: 50 Year
  Sex: Female

DRUGS (6)
  1. PULMICORT [Suspect]
     Indication: ASTHMA
     Dates: start: 20030101
  2. OXEZE [Suspect]
     Indication: ASTHMA
  3. VENTOLIN HFA [Concomitant]
  4. THEOPHYLLINE [Concomitant]
  5. SINGULAIR [Concomitant]
  6. NOVO-HYDROXYZIN [Concomitant]

REACTIONS (1)
  - ASTHMA [None]
